FAERS Safety Report 23222343 (Version 2)
Quarter: 2023Q4

REPORT INFORMATION
  Report Type: Spontaneous
  Country: US (occurrence: US)
  Receive Date: 20231123
  Receipt Date: 20231229
  Transmission Date: 20240110
  Serious: No
  Sender: FDA-Public Use
  Company Number: US-ABBVIE-5507864

PATIENT
  Sex: Female
  Weight: 54 kg

DRUGS (6)
  1. UBRELVY [Suspect]
     Active Substance: UBROGEPANT
     Indication: Migraine
     Dosage: 1/2 TABLET?FORM STRENGTH: 100 MILLIGRAM
     Route: 048
     Dates: start: 2023, end: 20231130
  2. UBRELVY [Suspect]
     Active Substance: UBROGEPANT
     Indication: Migraine
     Dosage: 1/2 TABLET?FORM STRENGTH: 100 MILLIGRAM
     Route: 048
     Dates: start: 2023, end: 202309
  3. ALBUTEROL [Concomitant]
     Active Substance: ALBUTEROL
     Indication: Asthma
  4. HYDROCHLOROTHIAZIDE [Concomitant]
     Active Substance: HYDROCHLOROTHIAZIDE
     Indication: Hypertension
  5. AVAPRO [Concomitant]
     Active Substance: IRBESARTAN
     Indication: Hypertension
     Dosage: DURATION TEXT: SINCE PATIENT WAS 42 YEARS OLD
  6. FLUTICASONE [Concomitant]
     Active Substance: FLUTICASONE
     Indication: Asthma

REACTIONS (8)
  - Irritable bowel syndrome [Recovering/Resolving]
  - Gastrooesophageal reflux disease [Recovering/Resolving]
  - Dry mouth [Recovered/Resolved]
  - Dysgeusia [Recovering/Resolving]
  - Food intolerance [Recovering/Resolving]
  - Abdominal pain upper [Recovering/Resolving]
  - Brain fog [Recovering/Resolving]
  - Headache [Recovering/Resolving]

NARRATIVE: CASE EVENT DATE: 20230101
